FAERS Safety Report 9254061 (Version 1)
Quarter: 2013Q1

REPORT INFORMATION
  Report Type: Spontaneous
  Country: US (occurrence: None)
  Receive Date: 20121211
  Receipt Date: 20121211
  Transmission Date: 20140127
  Serious: Yes (Disabling, Other)
  Sender: FDA-Public Use
  Company Number: 1112USA01017

PATIENT
  Age: 48 Year
  Sex: Female

DRUGS (4)
  1. ISENTRESS [Suspect]
     Indication: HIV INFECTION
     Route: 048
  2. INTELENCE [Suspect]
     Indication: HIV INFECTION
     Dates: start: 201108, end: 20111027
  3. PREZISTA [Suspect]
     Indication: HIV INFECTION
     Dates: start: 201108, end: 20111027
  4. NORVIR (RITONAVIR) [Suspect]
     Indication: HIV INFECTION
     Dates: start: 201108, end: 20111027

REACTIONS (1)
  - Stevens-Johnson syndrome [None]
